FAERS Safety Report 10075536 (Version 1)
Quarter: 2014Q2

REPORT INFORMATION
  Report Type: Spontaneous
  Country: US (occurrence: None)
  Receive Date: 20140411
  Receipt Date: 20140411
  Transmission Date: 20141212
  Serious: Yes (Hospitalization)
  Sender: FDA-Public Use
  Company Number: None

PATIENT
  Age: 67 Year
  Sex: Female
  Weight: 72.6 kg

DRUGS (1)
  1. PACLITAXEL (TAXOL) [Suspect]
     Dates: end: 20140303

REACTIONS (5)
  - Dyspnoea [None]
  - Fatigue [None]
  - Decreased appetite [None]
  - Fibrin D dimer increased [None]
  - Alveolar lung disease [None]
